FAERS Safety Report 4383730-X (Version None)
Quarter: 2004Q2

REPORT INFORMATION
  Report Type: 
  Country: None (occurrence: None)
  Receive Date: 20040608
  Receipt Date: 20030805
  Transmission Date: 20050107
  Serious: Yes (Other)
  Sender: FDA-Public Use
  Company Number: 200312715BCC

PATIENT
  Age: 55 Year
  Sex: Male
  Weight: 72.5755 kg

DRUGS (3)
  1. ALEVE [Suspect]
     Indication: FIBROMYALGIA
     Dosage: 440 MG, QD, ORAL
     Route: 048
     Dates: start: 20030805
  2. ALEVE [Suspect]
     Indication: PAIN
     Dosage: 440 MG, QD, ORAL
     Route: 048
     Dates: start: 20030805
  3. ^TOO MANY TO NAME^ [Concomitant]

REACTIONS (4)
  - ANAPHYLACTIC REACTION [None]
  - HOARSENESS [None]
  - SWOLLEN TONGUE [None]
  - WHEEZING [None]
